FAERS Safety Report 5874987-4 (Version None)
Quarter: 2008Q3

REPORT INFORMATION
  Report Type: 
  Country: None (occurrence: None)
  Receive Date: 20080909
  Receipt Date: 20080903
  Transmission Date: 20090109
  Serious: Yes (Other)
  Sender: FDA-Public Use
  Company Number: JP-ASTRAZENECA-2008AP05898

PATIENT
  Age: 31 Year
  Sex: Female

DRUGS (4)
  1. XYLOCAINE [Suspect]
     Indication: EPIDURAL ANAESTHESIA
     Route: 008
  2. ANAPEINE INJECTION [Suspect]
     Indication: EPIDURAL ANAESTHESIA
     Dosage: MIXED WITH FENTANYL (FENTANYL CITRATE) AND CONTINUOUSLY ADMINISTERED AT 4 ML/HOUR.
     Route: 008
  3. FENTANYL CITRATE [Concomitant]
     Indication: EPIDURAL ANAESTHESIA
     Route: 029
  4. FENTANYL CITRATE [Concomitant]
     Dosage: MIXED WITH ROPIVACAINE AND CONTINUOUSLY ADMINISTERED AT 4 ML/HOUR.
     Route: 008

REACTIONS (2)
  - HYPOAESTHESIA ORAL [None]
  - VISUAL IMPAIRMENT [None]
